FAERS Safety Report 17090730 (Version 13)
Quarter: 2020Q4

REPORT INFORMATION
  Report Type: Report from Study
  Country: US (occurrence: US)
  Receive Date: 20191129
  Receipt Date: 20201109
  Transmission Date: 20210113
  Serious: Yes (Hospitalization, Other)
  Sender: FDA-Public Use
  Company Number: NVSC2019US051854

PATIENT
  Age: 72 Year
  Sex: Female

DRUGS (2)
  1. VALSARTAN. [Suspect]
     Active Substance: VALSARTAN
     Indication: PRODUCT USED FOR UNKNOWN INDICATION
     Dosage: UNK
     Route: 065
  2. ENTRESTO [Suspect]
     Active Substance: SACUBITRIL\VALSARTAN
     Indication: CARDIAC FAILURE
     Dosage: 1 DF (49 MG OF SACUBITRIL AND 51 MG OF VALSARTAN), BID
     Route: 048
     Dates: start: 201911

REACTIONS (18)
  - Catheterisation cardiac [Unknown]
  - Oropharyngeal pain [Unknown]
  - Weight increased [Not Recovered/Not Resolved]
  - Blood insulin abnormal [Unknown]
  - Weight decreased [Unknown]
  - Headache [Not Recovered/Not Resolved]
  - Angina pectoris [Recovered/Resolved]
  - Dysphonia [Unknown]
  - Pain in extremity [Recovering/Resolving]
  - Swelling [Unknown]
  - Contusion [Recovering/Resolving]
  - Cholelithiasis [Recovering/Resolving]
  - Haematoma [Recovering/Resolving]
  - Ejection fraction decreased [Not Recovered/Not Resolved]
  - Hypertension [Not Recovered/Not Resolved]
  - Chest pain [Unknown]
  - Confusional state [Unknown]
  - Full blood count decreased [Recovering/Resolving]

NARRATIVE: CASE EVENT DATE: 201911
